FAERS Safety Report 7897404-1 (Version None)
Quarter: 2011Q4

REPORT INFORMATION
  Report Type: 
  Country: None (occurrence: None)
  Receive Date: 20111107
  Receipt Date: 20111101
  Transmission Date: 20120403
  Serious: Yes (Hospitalization, Other)
  Sender: FDA-Public Use
  Company Number: US-SANOFI-AVENTIS-2011SA026174

PATIENT
  Sex: Male
  Weight: 74 kg

DRUGS (12)
  1. ENOXAPARIN SODIUM [Suspect]
     Route: 058
  2. COUMADIN [Concomitant]
  3. ENOXAPARIN SODIUM [Suspect]
     Route: 058
     Dates: start: 20090101, end: 20090101
  4. ASPIRIN [Concomitant]
     Indication: FACTOR V LEIDEN MUTATION
  5. ENOXAPARIN SODIUM [Suspect]
     Indication: HYPERCOAGULATION
     Route: 058
     Dates: start: 20020401
  6. ENOXAPARIN SODIUM [Suspect]
     Route: 058
  7. ASPIRIN [Concomitant]
     Indication: HYPERCOAGULATION
  8. ENOXAPARIN SODIUM [Suspect]
     Route: 058
     Dates: start: 20090101, end: 20110101
  9. ENOXAPARIN SODIUM [Suspect]
     Indication: FACTOR V LEIDEN MUTATION
     Route: 058
     Dates: start: 20020401
  10. ENOXAPARIN SODIUM [Suspect]
     Route: 058
     Dates: start: 20090101, end: 20110101
  11. ENOXAPARIN SODIUM [Suspect]
     Route: 058
     Dates: start: 20090101, end: 20090101
  12. TOPROL-XL [Concomitant]

REACTIONS (11)
  - INJECTION SITE HAEMORRHAGE [None]
  - INJECTION SITE FIBROSIS [None]
  - SEASONAL ALLERGY [None]
  - CEREBROVASCULAR ACCIDENT [None]
  - CONTUSION [None]
  - MYOCARDIAL INFARCTION [None]
  - NIGHT SWEATS [None]
  - INJECTION SITE REACTION [None]
  - THROMBOSIS [None]
  - FATIGUE [None]
  - DIZZINESS [None]
